FAERS Safety Report 9794524 (Version 1)
Quarter: 2014Q1

REPORT INFORMATION
  Report Type: Spontaneous
  Country: CN (occurrence: CN)
  Receive Date: 20140102
  Receipt Date: 20140102
  Transmission Date: 20141002
  Serious: Yes (Other)
  Sender: FDA-Public Use
  Company Number: CN-JHP PHARMACEUTICALS, LLC-JHP201300788

PATIENT
  Age: 30 Year
  Sex: Female

DRUGS (1)
  1. KETALAR [Suspect]
     Indication: DRUG ABUSE
     Dosage: UNK

REACTIONS (2)
  - Bladder neck obstruction [Recovering/Resolving]
  - Hydronephrosis [Unknown]
